FAERS Safety Report 14458866 (Version 16)
Quarter: 2020Q1

REPORT INFORMATION
  Report Type: Report from Study
  Country: DE (occurrence: DE)
  Receive Date: 20180130
  Receipt Date: 20200121
  Transmission Date: 20200409
  Serious: Yes (Other)
  Sender: FDA-Public Use
  Company Number: DE-MYLANLABS-2018M1005245

PATIENT
  Age: 31 Year
  Sex: Male
  Weight: 82 kg

DRUGS (40)
  1. NORVIR [Suspect]
     Active Substance: RITONAVIR
     Indication: HIV INFECTION
     Dosage: 100 MG, QD (MOST RECENT DOSE OF 20/JUL/2016)
     Route: 048
     Dates: start: 20100101, end: 20160720
  2. NORVIR [Suspect]
     Active Substance: RITONAVIR
     Dosage: 100 MILLIGRAM, QD
     Route: 048
     Dates: start: 20160720
  3. SUBUTEX [Concomitant]
     Active Substance: BUPRENORPHINE HYDROCHLORIDE
     Indication: PRODUCT USED FOR UNKNOWN INDICATION
     Dosage: 4 MG, UNK
     Route: 065
  4. CITALOPRAM [Concomitant]
     Active Substance: CITALOPRAM HYDROBROMIDE
     Dosage: 40 MG, UNK
     Route: 065
     Dates: start: 20121220
  5. RIBAVIRIN. [Suspect]
     Active Substance: RIBAVIRIN
     Indication: CHRONIC HEPATITIS C
     Dosage: 1000 MG, QD (MOST RECENT DOSE ON 02/AUG/2012)
     Route: 048
     Dates: start: 20120524, end: 20120802
  6. COPEGUS [Suspect]
     Active Substance: RIBAVIRIN
     Dosage: 800 MG, QD(CUMULATIVE DOSE TO FIRST REACTION: 103473.69 MG 800 MG, QD )
     Route: 048
     Dates: start: 20120803, end: 20130425
  7. ACC AKUT [Concomitant]
     Active Substance: ACETYLCYSTEINE
     Indication: PRODUCT USED FOR UNKNOWN INDICATION
     Dosage: 600 MG, UNK
     Route: 065
  8. CITALOPRAM [Concomitant]
     Active Substance: CITALOPRAM HYDROBROMIDE
     Dosage: 40 MG, UNK
     Route: 065
     Dates: start: 20120621, end: 20130601
  9. CITALOPRAM [Concomitant]
     Active Substance: CITALOPRAM HYDROBROMIDE
     Dosage: 40 UNK
     Route: 065
  10. RIBAVIRIN. [Suspect]
     Active Substance: RIBAVIRIN
     Dosage: 800 MG, QD
     Route: 048
     Dates: start: 20120803, end: 20130425
  11. NORVIR [Suspect]
     Active Substance: RITONAVIR
     Dosage: 100 MILLIGRAM, QD
     Route: 048
     Dates: start: 2013
  12. REYATAZ [Suspect]
     Active Substance: ATAZANAVIR SULFATE
     Indication: HIV INFECTION
     Dosage: 300 MG, QD(CUMULATIVE DOSE TO FIRST REACTION: 262500 MG 300 MG, QD )
     Route: 048
     Dates: start: 20100101
  13. REYATAZ [Suspect]
     Active Substance: ATAZANAVIR SULFATE
     Indication: HEPATITIS C
  14. COPEGUS [Suspect]
     Active Substance: RIBAVIRIN
     Indication: CHRONIC HEPATITIS C
     Dosage: 1000 MG, QD
     Route: 048
     Dates: start: 20120524, end: 20120802
  15. COPEGUS [Suspect]
     Active Substance: RIBAVIRIN
     Dosage: 800 MG, UNK
     Route: 048
  16. COPEGUS [Suspect]
     Active Substance: RIBAVIRIN
     Dosage: 1000 MILLIGRAM, QD
     Route: 048
  17. TRUVADA [Suspect]
     Active Substance: EMTRICITABINE\TENOFOVIR DISOPROXIL FUMARATE
     Dosage: 1 DF, QD (LAST DOSE ON 20-JUL-2016)
     Route: 048
     Dates: start: 20100101
  18. AZITHROBETA [Concomitant]
     Active Substance: AZITHROMYCIN
     Indication: PRODUCT USED FOR UNKNOWN INDICATION
     Dosage: 500 MG, QD
     Route: 065
     Dates: start: 20130603, end: 20130605
  19. CITALOPRAM [Concomitant]
     Active Substance: CITALOPRAM HYDROBROMIDE
     Indication: PRODUCT USED FOR UNKNOWN INDICATION
     Dosage: 20 MG, UNK (UNKNOWN,UNKNOWN,UNKNOWN)
     Route: 065
     Dates: start: 20120621, end: 20130601
  20. AZITHROBETA [Concomitant]
     Active Substance: AZITHROMYCIN
     Indication: PRODUCT USED FOR UNKNOWN INDICATION
     Dosage: 500 MILLIGRAM, QD
     Route: 065
     Dates: start: 20130603
  21. AZITHROBETA [Concomitant]
     Active Substance: AZITHROMYCIN
     Indication: PRODUCT USED FOR UNKNOWN INDICATION
     Dosage: 500 MILLIGRAM, QD
     Dates: start: 20130603, end: 20130605
  22. EMTRICITABINE/TENOFOVIR DISOPROXIL FUMARATE [Suspect]
     Active Substance: EMTRICITABINE\TENOFOVIR DISOPROXIL FUMARATE
     Dosage: 200 MILLIGRAM, QD
     Route: 048
     Dates: start: 20160720
  23. METAMIZOLE [Concomitant]
     Active Substance: METAMIZOLE
     Indication: PRODUCT USED FOR UNKNOWN INDICATION
     Dosage: UNK
     Route: 065
  24. COPEGUS [Suspect]
     Active Substance: RIBAVIRIN
     Dosage: 800 MILLIGRAM, QD
     Route: 048
     Dates: start: 20120803, end: 20120805
  25. PEGASYS [Suspect]
     Active Substance: PEGINTERFERON ALFA-2A
     Indication: CHRONIC HEPATITIS C
     Dosage: 180 ?G, QD
     Route: 058
     Dates: start: 20120524
  26. TRUVADA [Suspect]
     Active Substance: EMTRICITABINE\TENOFOVIR DISOPROXIL FUMARATE
     Indication: HIV INFECTION
     Dosage: 200 MILLIGRAM, QD
     Route: 048
     Dates: start: 20100101, end: 20160720
  27. BETAGALEN [Concomitant]
     Indication: PRODUCT USED FOR UNKNOWN INDICATION
     Dosage: UNK
     Route: 065
     Dates: start: 20120705
  28. EMTRICITABINE/TENOFOVIR DISOPROXIL FUMARATE [Suspect]
     Active Substance: EMTRICITABINE\TENOFOVIR DISOPROXIL FUMARATE
     Indication: HIV INFECTION
     Dosage: 200 MG, QD (MOST RECENT DOSE OF 20/JUL/2016)
     Route: 048
     Dates: start: 20100101, end: 20160720
  29. NORVIR [Suspect]
     Active Substance: RITONAVIR
     Dosage: 80 MILLIGRAM, QD
     Route: 048
     Dates: end: 2013
  30. ATAZANAVIR. [Suspect]
     Active Substance: ATAZANAVIR
     Indication: HIV INFECTION
     Dosage: 300 MG, QD
     Route: 048
     Dates: start: 20100101, end: 20160720
  31. CITALOPRAM [Concomitant]
     Active Substance: CITALOPRAM HYDROBROMIDE
     Dosage: 20 MILLIGRAM, QD
  32. RIBAVIRIN. [Suspect]
     Active Substance: RIBAVIRIN
     Dosage: 1000 MG, QD CUMULATIVE DOSE TO FIRST REACTION: 103473.69 MG
     Route: 048
     Dates: start: 20120803, end: 20130425
  33. COPEGUS [Suspect]
     Active Substance: RIBAVIRIN
     Indication: PRODUCT USED FOR UNKNOWN INDICATION
     Dosage: 800 MILLIGRAM
     Route: 048
  34. METAMIZOLE [Concomitant]
     Active Substance: METAMIZOLE
     Indication: PRODUCT USED FOR UNKNOWN INDICATION
     Dosage: UNK
     Route: 065
     Dates: start: 20121221
  35. METAMIZOLE [Concomitant]
     Active Substance: METAMIZOLE
     Dosage: UNK
  36. EMTRICITABINE/TENOFOVIR DISOPROXIL FUMARATE [Suspect]
     Active Substance: EMTRICITABINE\TENOFOVIR DISOPROXIL FUMARATE
     Dosage: 1000 MILLIGRAM, QD
     Route: 048
     Dates: start: 20120524, end: 20120802
  37. RITONAVIR. [Suspect]
     Active Substance: RITONAVIR
     Indication: HIV INFECTION
     Dosage: 100 MG, QD
     Route: 048
     Dates: start: 20100101, end: 20160720
  38. PEGINTERFERON ALFA-2A. [Suspect]
     Active Substance: PEGINTERFERON ALFA-2A
     Indication: CHRONIC HEPATITIS C
     Dosage: 180 ?G, QW (MOST RECENT DOSE OF 25/APR/2013)
     Route: 058
     Dates: start: 20120524, end: 20130425
  39. TELAPREVIR [Suspect]
     Active Substance: TELAPREVIR
     Indication: CHRONIC HEPATITIS C
     Dosage: 2250 MG, QD (MOST RECENT DOSE OF 16/AUG/2012_
     Route: 048
     Dates: start: 20120524
  40. ACC AKUT [Concomitant]
     Active Substance: ACETYLCYSTEINE
     Dosage: 600 MG, UNK (AS NECESSARY)
     Route: 065
     Dates: start: 20130314

REACTIONS (22)
  - Drug dependence [Not Recovered/Not Resolved]
  - Oral herpes [Recovered/Resolved]
  - Nausea [Recovered/Resolved]
  - Depressed mood [Not Recovered/Not Resolved]
  - Skin irritation [Not Recovered/Not Resolved]
  - Wrong dose [Recovered/Resolved]
  - Dry skin [Not Recovered/Not Resolved]
  - Fatigue [Recovered/Resolved]
  - Restlessness [Recovered/Resolved]
  - Taste disorder [Not Recovered/Not Resolved]
  - Pruritus [Not Recovered/Not Resolved]
  - Alanine aminotransferase increased [Not Recovered/Not Resolved]
  - Influenza like illness [Recovered/Resolved]
  - Dizziness [Recovered/Resolved]
  - Impaired healing [Recovered/Resolved]
  - Headache [Recovered/Resolved]
  - Vertigo [Recovered/Resolved]
  - Incorrect dose administered [Recovered/Resolved]
  - Withdrawal syndrome [Not Recovered/Not Resolved]
  - Anaemia [Not Recovered/Not Resolved]
  - Sinusitis [Recovered/Resolved]
  - Laboratory test abnormal [Unknown]

NARRATIVE: CASE EVENT DATE: 20120524
